FAERS Safety Report 12740829 (Version 1)
Quarter: 2016Q3

REPORT INFORMATION
  Report Type: Spontaneous
  Country: US (occurrence: US)
  Receive Date: 20160914
  Receipt Date: 20160914
  Transmission Date: 20161109
  Serious: No
  Sender: FDA-Public Use
  Company Number: US-TEVA-623663USA

PATIENT
  Sex: Female

DRUGS (1)
  1. FLUOXETINE [Suspect]
     Active Substance: FLUOXETINE HYDROCHLORIDE
     Dosage: 20 MG/5 ML

REACTIONS (4)
  - Product quality issue [Unknown]
  - Dysphagia [Unknown]
  - Frequent bowel movements [Unknown]
  - Abdominal pain upper [Unknown]
